FAERS Safety Report 16168226 (Version 1)
Quarter: 2019Q2

REPORT INFORMATION
  Report Type: Spontaneous
  Country: US (occurrence: US)
  Receive Date: 20190405
  Receipt Date: 20190405
  Transmission Date: 20190711
  Serious: No
  Sender: FDA-Public Use
  Company Number: None

PATIENT
  Age: 17 Month
  Sex: Female
  Weight: 9 kg

DRUGS (8)
  1. TRIAMCINOLONE [Concomitant]
     Active Substance: TRIAMCINOLONE
  2. HYDROCORTISONE. [Concomitant]
     Active Substance: HYDROCORTISONE
  3. TACROLIMUS. [Concomitant]
     Active Substance: TACROLIMUS
  4. HYDROCORTISONE. [Concomitant]
     Active Substance: HYDROCORTISONE
  5. EUCRISA [Suspect]
     Active Substance: CRISABOROLE
     Indication: ECZEMA
     Dosage: ?          QUANTITY:60 CREAM;?
     Route: 061
     Dates: start: 20180620, end: 20190305
  6. ELIDEL [Concomitant]
     Active Substance: PIMECROLIMUS
  7. HYDRIXZINE [Concomitant]
  8. MULTIVITAMIN [Concomitant]
     Active Substance: VITAMINS

REACTIONS (2)
  - Skin burning sensation [None]
  - Urticaria [None]

NARRATIVE: CASE EVENT DATE: 20190305
